FAERS Safety Report 8062319-5 (Version None)
Quarter: 2012Q1

REPORT INFORMATION
  Report Type: 
  Country: None (occurrence: None)
  Receive Date: 20120123
  Receipt Date: 20120112
  Transmission Date: 20120608
  Serious: Yes (Disabling, Other)
  Sender: FDA-Public Use
  Company Number: GB-TEVA-317209ISR

PATIENT
  Age: 85 Year
  Sex: Female

DRUGS (13)
  1. MEMANTINE [Suspect]
     Indication: AMNESIA
     Dosage: AT NIGHT
     Route: 048
     Dates: start: 20080101
  2. SIMVASTATIN [Concomitant]
     Dosage: AT NIGHT
     Route: 048
  3. REMINYL XL [Concomitant]
     Route: 048
  4. ASPIRIN AND DIPYRIDAMOLE [Concomitant]
  5. OMEPRAZOLE [Concomitant]
  6. ALENDRONIC ACID [Concomitant]
     Route: 048
  7. ACETAMINOPHEN [Concomitant]
     Route: 048
  8. CODEINE SUL TAB [Concomitant]
     Indication: PAIN
     Route: 048
  9. AMITRIPTYLINE HCL [Suspect]
     Indication: ANALGESIC THERAPY
     Dosage: AT NIGHT
     Route: 048
     Dates: start: 20100228, end: 20111101
  10. LAXIDO [Concomitant]
     Dosage: 1-2 SACHETS DAILY
  11. CALCIUM CARBONATE [Concomitant]
     Route: 048
  12. INDAPAMIDE [Concomitant]
     Dosage: IN THE MORNING
  13. PERINDOPRIL [Concomitant]

REACTIONS (3)
  - BALANCE DISORDER [None]
  - TREMOR [None]
  - DRUG INTERACTION [None]
